FAERS Safety Report 15642436 (Version 2)
Quarter: 2019Q1

REPORT INFORMATION
  Report Type: Report from Study
  Country: None (occurrence: CA)
  Receive Date: 20181121
  Receipt Date: 20190130
  Transmission Date: 20190417
  Serious: Yes (Hospitalization)
  Sender: FDA-Public Use
  Company Number: CA-ABBVIE-18K-028-2535975-00

PATIENT
  Age: 25 Year
  Sex: Female

DRUGS (2)
  1. HUMIRA [Suspect]
     Active Substance: ADALIMUMAB
     Route: 058
  2. HUMIRA [Suspect]
     Active Substance: ADALIMUMAB
     Indication: CROHN^S DISEASE
     Route: 058
     Dates: start: 201802

REACTIONS (13)
  - Large intestinal ulcer [Unknown]
  - Large intestinal stenosis [Unknown]
  - Device issue [Unknown]
  - Intestinal obstruction [Unknown]
  - Injection site haemorrhage [Recovered/Resolved]
  - Crohn^s disease [Unknown]
  - Incorrect dose administered [Unknown]
  - Injection site pain [Recovered/Resolved with Sequelae]
  - Abdominal distension [Unknown]
  - Injection site reaction [Unknown]
  - Gastrointestinal scarring [Unknown]
  - Urinary tract infection [Recovered/Resolved]
  - Drug level decreased [Unknown]

NARRATIVE: CASE EVENT DATE: 2018
